FAERS Safety Report 20883637 (Version 1)
Quarter: 2022Q2

REPORT INFORMATION
  Report Type: Spontaneous
  Country: MX (occurrence: MX)
  Receive Date: 20220527
  Receipt Date: 20220527
  Transmission Date: 20220721
  Serious: Yes (Other)
  Sender: FDA-Public Use
  Company Number: MX-GLAXOSMITHKLINE-MX2022AMR020403

PATIENT

DRUGS (5)
  1. WELLBUTRIN XL [Suspect]
     Active Substance: BUPROPION HYDROCHLORIDE
     Indication: Anxiety
     Dosage: 1 DF, QD 150 MG
     Dates: start: 20220118
  2. WELLBUTRIN XL [Suspect]
     Active Substance: BUPROPION HYDROCHLORIDE
     Indication: Depression
     Dosage: 1 DF, QD 300 MG
     Dates: start: 20220125
  3. WELLBUTRIN XL [Suspect]
     Active Substance: BUPROPION HYDROCHLORIDE
     Indication: Attention deficit hyperactivity disorder
     Dosage: 1 DF, QD 150 MG
     Dates: start: 202201
  4. DIETARY SUPPLEMENT\FOLIC ACID\VITAMINS [Suspect]
     Active Substance: DIETARY SUPPLEMENT\FOLIC ACID\VITAMINS
     Indication: Product used for unknown indication
     Dosage: 1 DF, QD
  5. FOLIC ACID [Suspect]
     Active Substance: FOLIC ACID
     Indication: Product used for unknown indication
     Dosage: 400 MG

REACTIONS (13)
  - Choking [Unknown]
  - Dizziness [Not Recovered/Not Resolved]
  - Fatigue [Not Recovered/Not Resolved]
  - Vomiting [Recovered/Resolved]
  - Nausea [Not Recovered/Not Resolved]
  - Diarrhoea [Recovered/Resolved]
  - Gastrointestinal pain [Not Recovered/Not Resolved]
  - Discomfort [Unknown]
  - Intestinal transit time decreased [Unknown]
  - Choking sensation [Unknown]
  - Throat tightness [Unknown]
  - Metabolic disorder [Unknown]
  - Product use in unapproved indication [Unknown]

NARRATIVE: CASE EVENT DATE: 20220118
